FAERS Safety Report 6600996-3 (Version None)
Quarter: 2010Q1

REPORT INFORMATION
  Report Type: 
  Country: None (occurrence: None)
  Receive Date: 20100225
  Receipt Date: 20100217
  Transmission Date: 20100710
  Serious: Yes (Other)
  Sender: FDA-Public Use
  Company Number: US-JNJFOC-20091100644

PATIENT
  Sex: Male
  Weight: 85.19 kg

DRUGS (1)
  1. DOXIL [Suspect]
     Indication: DRUG USE FOR UNKNOWN INDICATION
     Route: 042

REACTIONS (3)
  - DRUG DISPENSING ERROR [None]
  - INFUSION RELATED REACTION [None]
  - WRONG DRUG ADMINISTERED [None]
